FAERS Safety Report 7216451-6 (Version None)
Quarter: 2011Q1

REPORT INFORMATION
  Report Type: 
  Country: None (occurrence: None)
  Receive Date: 20110107
  Receipt Date: 20101228
  Transmission Date: 20110831
  Serious: Yes (Other)
  Sender: FDA-Public Use
  Company Number: JP-ABBOTT-10P-087-0683454-00

PATIENT
  Sex: Male

DRUGS (12)
  1. MUCOSOLVAN [Concomitant]
     Indication: PNEUMONIA
     Route: 048
     Dates: start: 20100603, end: 20100608
  2. MAGNESIUM OXIDE [Concomitant]
     Indication: CONSTIPATION
     Route: 048
     Dates: start: 20090703
  3. ADOAIR [Concomitant]
     Indication: ASTHMA
     Dosage: 500 MG DAILY
     Route: 055
     Dates: start: 20090908
  4. DISOPYRAMIDE [Interacting]
     Route: 048
     Dates: start: 20100521, end: 20100609
  5. SPIRIVA [Concomitant]
     Indication: EMPHYSEMA
     Dosage: 18 MG DAILY
     Route: 055
     Dates: start: 20090414
  6. VERAPAMIL [Interacting]
     Indication: ATRIAL FIBRILLATION
     Route: 048
     Dates: start: 20090401, end: 20100518
  7. LEVOFLOXACIN [Interacting]
     Indication: PNEUMONIA
     Dosage: 500 MG DAILY
     Dates: start: 20100603, end: 20100609
  8. CLARITHROMYCIN [Suspect]
     Indication: BRONCHITIS CHRONIC
     Dosage: 200 MG DAILY
     Route: 048
     Dates: start: 20090818, end: 20100609
  9. DISOPYRAMIDE [Interacting]
     Indication: ATRIAL FIBRILLATION
     Route: 048
     Dates: start: 20090401, end: 20100518
  10. LEVOFLOXACIN [Interacting]
     Indication: PLEURAL EFFUSION
     Dosage: 500 MG DAILY
     Route: 048
     Dates: start: 20100511, end: 20100513
  11. LEVOFLOXACIN [Interacting]
     Indication: PYREXIA
  12. CHEMOTHERAPEUTICS [Concomitant]
     Indication: LUNG SQUAMOUS CELL CARCINOMA STAGE UNSPECIFIED

REACTIONS (2)
  - TORSADE DE POINTES [None]
  - DRUG INTERACTION [None]
